FAERS Safety Report 4983995-7 (Version None)
Quarter: 2006Q2

REPORT INFORMATION
  Report Type: 
  Country: None (occurrence: None)
  Receive Date: 20060426
  Receipt Date: 20051003
  Transmission Date: 20061013
  Serious: Yes (Hospitalization, Disabling, Other)
  Sender: FDA-Public Use
  Company Number: US-MERCK-0510USA02638

PATIENT
  Age: 54 Year
  Sex: Female
  Weight: 85 kg

DRUGS (3)
  1. VIOXX [Suspect]
     Indication: ARTHRALGIA
     Route: 048
     Dates: start: 19991111, end: 20010630
  2. VIOXX [Suspect]
     Route: 048
  3. TYLENOL (CAPLET) [Concomitant]
     Route: 065

REACTIONS (22)
  - AFFECTIVE DISORDER [None]
  - BURSITIS [None]
  - CARDIAC FAILURE CONGESTIVE [None]
  - CHEST PAIN [None]
  - CHOLELITHIASIS [None]
  - CORONARY ARTERY DISEASE [None]
  - CORONARY ARTERY STENOSIS [None]
  - DEPRESSION [None]
  - DIABETES MELLITUS INADEQUATE CONTROL [None]
  - FLUID OVERLOAD [None]
  - HAEMATOMA [None]
  - HYPERCOAGULATION [None]
  - HYPERLIPIDAEMIA [None]
  - ISCHAEMIC CARDIOMYOPATHY [None]
  - LOCALISED INFECTION [None]
  - MYOCARDIAL INFARCTION [None]
  - MYOCARDIAL ISCHAEMIA [None]
  - PLEURAL EFFUSION [None]
  - PULMONARY OEDEMA [None]
  - SPINAL DISORDER [None]
  - VOMITING [None]
  - WOUND INFECTION [None]
